FAERS Safety Report 25884947 (Version 1)
Quarter: 2025Q4

REPORT INFORMATION
  Report Type: Spontaneous
  Country: US (occurrence: None)
  Receive Date: 20251004
  Receipt Date: 20251004
  Transmission Date: 20260119
  Serious: Yes (Disabling)
  Sender: FDA-CTU
  Company Number: None

PATIENT
  Age: 36 Year
  Sex: Female

DRUGS (6)
  1. AMOXICILLIN\CLAVULANATE POTASSIUM [Suspect]
     Active Substance: AMOXICILLIN\CLAVULANATE POTASSIUM
     Indication: Ear infection
     Dosage: OTHER QUANTITY : 1 TABLET(S);?FREQUENCY : TWICE A DAY;?
     Route: 048
     Dates: start: 20250924, end: 20251003
  2. Meloxicam 15mg once daily [Concomitant]
  3. lo loestrin FE once daily [Concomitant]
  4. tramadol 50mg PRN [Concomitant]
  5. Aspirin 81mg BID [Concomitant]
  6. calcium/vitamin d supplement (1200mg/25mcg or 1000IU) [Concomitant]

REACTIONS (3)
  - Mouth ulceration [None]
  - Gingival ulceration [None]
  - Lip ulceration [None]

NARRATIVE: CASE EVENT DATE: 20250924
